APPROVED DRUG PRODUCT: ACETAZOLAMIDE
Active Ingredient: ACETAZOLAMIDE
Strength: 500MG
Dosage Form/Route: CAPSULE, EXTENDED RELEASE;ORAL
Application: A203917 | Product #001
Applicant: RISING PHARMA HOLDINGS INC
Approved: Jun 18, 2019 | RLD: No | RS: No | Type: DISCN